FAERS Safety Report 18915736 (Version 1)
Quarter: 2021Q1

REPORT INFORMATION
  Report Type: Spontaneous
  Country: US (occurrence: US)
  Receive Date: 20210219
  Receipt Date: 20210219
  Transmission Date: 20210420
  Serious: Yes (Life-Threatening, Hospitalization, Other)
  Sender: FDA-Public Use
  Company Number: US-SA-2021SA043637

PATIENT
  Age: 26 Year
  Sex: Male

DRUGS (4)
  1. DOXYCYCLINE. [Concomitant]
     Active Substance: DOXYCYCLINE
     Indication: PNEUMONIA
     Dosage: UNK
  2. HYDROCORTISONE SALT NOT SPECIFIED [Suspect]
     Active Substance: HYDROCORTISONE
     Dosage: GRADUAL DECREASE (TAPER)
  3. HYDROCORTISONE SALT NOT SPECIFIED [Suspect]
     Active Substance: HYDROCORTISONE
     Dosage: 10 MG, QD, REDUCED DOSE
  4. HYDROCORTISONE SALT NOT SPECIFIED [Suspect]
     Active Substance: HYDROCORTISONE
     Indication: PITUITARY-DEPENDENT CUSHING^S SYNDROME
     Dosage: 20 MG, QD

REACTIONS (15)
  - Cardiomyopathy [Recovered/Resolved]
  - Tachypnoea [Recovered/Resolved]
  - Oedema peripheral [Recovered/Resolved]
  - Fatigue [Recovered/Resolved]
  - Pulmonary congestion [Recovered/Resolved]
  - Mitral valve incompetence [Recovered/Resolved]
  - Cardiomegaly [Recovered/Resolved]
  - Left ventricular dysfunction [Recovered/Resolved]
  - Dyspnoea [Recovered/Resolved]
  - Pleural effusion [Recovered/Resolved]
  - Tachycardia [Recovered/Resolved]
  - Left ventricular dilatation [Recovered/Resolved]
  - Tricuspid valve incompetence [Recovered/Resolved]
  - Cardiac failure congestive [Recovered/Resolved]
  - Rales [Recovered/Resolved]
